FAERS Safety Report 5908832-5 (Version None)
Quarter: 2008Q4

REPORT INFORMATION
  Report Type: 
  Country: None (occurrence: None)
  Receive Date: 20081001
  Receipt Date: 20080923
  Transmission Date: 20090506
  Serious: Yes (Hospitalization)
  Sender: FDA-Public Use
  Company Number: 2008BI015988

PATIENT
  Age: 57 Year
  Sex: Male

DRUGS (1)
  1. AVONEX [Suspect]
     Indication: MULTIPLE SCLEROSIS
     Dosage: IM; 30 UG; QW; IM
     Route: 030
     Dates: end: 20080501

REACTIONS (7)
  - CLOSTRIDIAL INFECTION [None]
  - CYSTITIS [None]
  - DECUBITUS ULCER [None]
  - ENTERITIS INFECTIOUS [None]
  - FALL [None]
  - RHABDOMYOLYSIS [None]
  - URINARY TRACT INFECTION [None]
